FAERS Safety Report 8427513-X (Version None)
Quarter: 2012Q2

REPORT INFORMATION
  Report Type: 
  Country: None (occurrence: None)
  Receive Date: 20120323
  Receipt Date: 20111019
  Transmission Date: 20120825
  Serious: Yes (Hospitalization)
  Sender: FDA-Public Use
  Company Number: 163-21880-11080638

PATIENT
  Age: 67 Year
  Sex: Female
  Weight: 79.3795 kg

DRUGS (10)
  1. ALLOPURINOL [Concomitant]
  2. ADVAIR HFA [Concomitant]
  3. REVLIMID [Suspect]
     Indication: CHRONIC LYMPHOCYTIC LEUKAEMIA
     Dosage: 10 MG, X21 DAYS EVERY 28 DAYS, PO
     Route: 048
     Dates: start: 20110628
  4. ALBUTEROL [Concomitant]
  5. METFFORMIN HYDROCHLORIDE [Concomitant]
  6. LOVASTATIN [Concomitant]
  7. LISINOPRIL [Concomitant]
  8. FAMOTODINE (FAMOTIDINE) [Concomitant]
  9. SPIRIVA [Concomitant]
  10. XANAX [Concomitant]

REACTIONS (2)
  - DYSPNOEA [None]
  - RASH [None]
